FAERS Safety Report 8412026-1 (Version None)
Quarter: 2012Q2

REPORT INFORMATION
  Report Type: 
  Country: None (occurrence: None)
  Receive Date: 20120605
  Receipt Date: 20120518
  Transmission Date: 20120825
  Serious: No
  Sender: FDA-Public Use
  Company Number: US-AMGEN-USASP2012031442

PATIENT
  Sex: Female

DRUGS (1)
  1. ENBREL [Suspect]
     Indication: RHEUMATOID ARTHRITIS
     Dosage: 50 MG, QWK
     Dates: start: 20060101, end: 20110501

REACTIONS (8)
  - BLOOD GLUCOSE INCREASED [None]
  - WOUND INFECTION [None]
  - IMPAIRED HEALING [None]
  - NASOPHARYNGITIS [None]
  - INFECTION [None]
  - PERIPHERAL VASCULAR DISORDER [None]
  - JOINT SWELLING [None]
  - PAIN IN EXTREMITY [None]
